FAERS Safety Report 23671545 (Version 1)
Quarter: 2024Q1

REPORT INFORMATION
  Report Type: Spontaneous
  Country: BR (occurrence: BR)
  Receive Date: 20240326
  Receipt Date: 20240326
  Transmission Date: 20240410
  Serious: Yes (Hospitalization, Other)
  Sender: FDA-Public Use
  Company Number: BR-MLMSERVICE-20240311-4874673-1

PATIENT
  Sex: Female

DRUGS (24)
  1. CARBOPLATIN [Suspect]
     Active Substance: CARBOPLATIN
     Indication: Diffuse large B-cell lymphoma stage III
     Dosage: FOUR CYCLES
  2. ETOPOSIDE [Suspect]
     Active Substance: ETOPOSIDE
     Indication: Diffuse large B-cell lymphoma stage III
     Dosage: FOUR CYCLES
  3. GEMCITABINE [Suspect]
     Active Substance: GEMCITABINE
     Indication: Uterine cancer
     Dosage: 4 CYCLES
  4. OXALIPLATIN [Suspect]
     Active Substance: OXALIPLATIN
     Indication: Uterine cancer
     Dosage: 4 CYCLES
  5. DOXORUBICIN [Suspect]
     Active Substance: DOXORUBICIN
     Indication: Uterine cancer
     Dosage: EIGHT CYCLES OF R-CHOP
     Dates: start: 2016
  6. VINCRISTINE [Suspect]
     Active Substance: VINCRISTINE
     Indication: Diffuse large B-cell lymphoma stage III
     Dosage: EIGHT CYCLES OF R-CHOP
     Dates: start: 2016
  7. RITUXIMAB [Suspect]
     Active Substance: RITUXIMAB
     Indication: Diffuse large B-cell lymphoma stage III
     Dosage: FOUR CYCLES
  8. IFOSFAMIDE [Suspect]
     Active Substance: IFOSFAMIDE
     Indication: Diffuse large B-cell lymphoma stage III
     Dosage: FOUR CYCLES
  9. CYCLOPHOSPHAMIDE [Suspect]
     Active Substance: CYCLOPHOSPHAMIDE
     Indication: Diffuse large B-cell lymphoma stage III
     Dosage: EIGHT CYCLES OF R-CHOP
     Dates: start: 2016
  10. PREDNISONE [Suspect]
     Active Substance: PREDNISONE
     Indication: Uterine cancer
     Dosage: EIGHT CYCLES OF R-CHOP
     Dates: start: 2016
  11. MESNA [Concomitant]
     Active Substance: MESNA
     Indication: Diffuse large B-cell lymphoma stage III
     Dosage: FOUR CYCLES
  12. PREDNISONE [Suspect]
     Active Substance: PREDNISONE
     Indication: Diffuse large B-cell lymphoma stage III
     Dosage: EIGHT CYCLES OF R-CHOP
     Dates: start: 2016
  13. RITUXIMAB [Suspect]
     Active Substance: RITUXIMAB
     Indication: Uterine cancer
     Dosage: FOUR CYCLES
  14. ETOPOSIDE [Suspect]
     Active Substance: ETOPOSIDE
     Indication: Uterine cancer
     Dosage: FOUR CYCLES
  15. RITUXIMAB [Suspect]
     Active Substance: RITUXIMAB
     Indication: Uterine cancer
     Dosage: EIGHT CYCLES OF R-CHOP
     Dates: start: 2016
  16. RITUXIMAB [Suspect]
     Active Substance: RITUXIMAB
     Indication: Diffuse large B-cell lymphoma stage III
     Dosage: EIGHT CYCLES OF R-CHOP
     Dates: start: 2016
  17. IFOSFAMIDE [Suspect]
     Active Substance: IFOSFAMIDE
     Indication: Uterine cancer
     Dosage: FOUR CYCLES
  18. MESNA [Concomitant]
     Active Substance: MESNA
     Indication: Uterine cancer
     Dosage: FOUR CYCLES
  19. GEMCITABINE [Suspect]
     Active Substance: GEMCITABINE
     Indication: Diffuse large B-cell lymphoma stage III
     Dosage: 4 CYCLES
  20. CARBOPLATIN [Suspect]
     Active Substance: CARBOPLATIN
     Indication: Uterine cancer
     Dosage: FOUR CYCLES
  21. OXALIPLATIN [Suspect]
     Active Substance: OXALIPLATIN
     Indication: Diffuse large B-cell lymphoma stage III
     Dosage: 4 CYCLES
  22. DOXORUBICIN [Suspect]
     Active Substance: DOXORUBICIN
     Indication: Diffuse large B-cell lymphoma stage III
     Dosage: EIGHT CYCLES OF R-CHOP
     Dates: start: 2016
  23. VINCRISTINE [Suspect]
     Active Substance: VINCRISTINE
     Indication: Uterine cancer
     Dosage: EIGHT CYCLES OF R-CHOP
     Dates: start: 2016
  24. CYCLOPHOSPHAMIDE [Suspect]
     Active Substance: CYCLOPHOSPHAMIDE
     Indication: Uterine cancer
     Dosage: EIGHT CYCLES OF R-CHOP
     Dates: start: 2016

REACTIONS (5)
  - Mitral valve incompetence [Recovering/Resolving]
  - Left ventricular failure [Recovering/Resolving]
  - Aortic valve incompetence [Recovering/Resolving]
  - Myocardial ischaemia [Recovering/Resolving]
  - Off label use [Unknown]

NARRATIVE: CASE EVENT DATE: 20180101
